FAERS Safety Report 25806593 (Version 1)
Quarter: 2025Q3

REPORT INFORMATION
  Report Type: Report from Study
  Country: US (occurrence: US)
  Receive Date: 20250916
  Receipt Date: 20250916
  Transmission Date: 20251020
  Serious: Yes (Other)
  Sender: BAUSCH AND LOMB
  Company Number: US-BAUSCHBL-2025BNL012826

PATIENT
  Age: 94 Year
  Sex: Female

DRUGS (2)
  1. MIEBO [Suspect]
     Active Substance: PERFLUOROHEXYLOCTANE
     Indication: Keratitis
     Dosage: INSTILL 1 DROP INTO EACH EYE 4 TIMES DAILY
     Route: 047
     Dates: start: 20250717
  2. XIIDRA [Suspect]
     Active Substance: LIFITEGRAST
     Indication: Product used for unknown indication
     Route: 065

REACTIONS (9)
  - Corneal degeneration [Unknown]
  - Vision blurred [Unknown]
  - Product use complaint [Unknown]
  - Product container issue [Unknown]
  - Product delivery mechanism issue [Unknown]
  - Circumstance or information capable of leading to medication error [Unknown]
  - Product use issue [Unknown]
  - Therapy interrupted [Unknown]
  - Inability to afford medication [Unknown]

NARRATIVE: CASE EVENT DATE: 20250101
